APPROVED DRUG PRODUCT: OXAZEPAM
Active Ingredient: OXAZEPAM
Strength: 30MG
Dosage Form/Route: CAPSULE;ORAL
Application: A071715 | Product #001
Applicant: MYLAN PHARMACEUTICALS INC
Approved: Oct 20, 1987 | RLD: No | RS: No | Type: DISCN